FAERS Safety Report 5777544-3 (Version None)
Quarter: 2008Q2

REPORT INFORMATION
  Report Type: 
  Country: None (occurrence: None)
  Receive Date: 20080618
  Receipt Date: 20080603
  Transmission Date: 20081010
  Serious: Yes (Hospitalization, Other)
  Sender: FDA-Public Use
  Company Number: FR-PFIZER INC-2008048089

PATIENT
  Sex: Female
  Weight: 4.1 kg

DRUGS (2)
  1. NEURONTIN [Suspect]
  2. URBANYL [Suspect]

REACTIONS (5)
  - DRUG EXPOSURE DURING PREGNANCY [None]
  - DYSPHAGIA [None]
  - HYPOTONIA NEONATAL [None]
  - MACROSOMIA [None]
  - RETROGNATHIA [None]
